FAERS Safety Report 4521082-2 (Version None)
Quarter: 2004Q4

REPORT INFORMATION
  Report Type: 
  Country: None (occurrence: None)
  Receive Date: 20041206
  Receipt Date: 20041122
  Transmission Date: 20050328
  Serious: Yes (Other)
  Sender: FDA-Public Use
  Company Number: 210609

PATIENT
  Age: 68 Year
  Sex: Male

DRUGS (3)
  1. MABTHERA (RITUXIMAB) CONC FOR SOLUTION FOR INFUSION [Suspect]
     Indication: CHRONIC LYMPHOCYTIC LEUKAEMIA
     Dosage: 950 MG, INTRAVENOUS
     Route: 042
     Dates: start: 20040701, end: 20041004
  2. FLUDARABINE PHOSPHATE [Suspect]
     Indication: CHRONIC LYMPHOCYTIC LEUKAEMIA
     Dosage: 47.5 MG, INTRAVENOUS
     Route: 042
     Dates: start: 20040701, end: 20041007
  3. CYCLOPHOSPHAMIDE [Suspect]
     Indication: CHRONIC LYMPHOCYTIC LEUKAEMIA
     Dosage: 475 MG, INTRAVENOUS
     Route: 042
     Dates: start: 20040701, end: 20041007

REACTIONS (9)
  - ALCOHOLISM [None]
  - CONDITION AGGRAVATED [None]
  - HEPATIC CIRRHOSIS [None]
  - HEPATIC FIBROSIS [None]
  - HEPATITIS C [None]
  - HEPATITIS C ANTIBODY POSITIVE [None]
  - HEPATOCELLULAR DAMAGE [None]
  - LIVER DISORDER [None]
  - LIVER TENDERNESS [None]
